FAERS Safety Report 5270389-2 (Version None)
Quarter: 2007Q1

REPORT INFORMATION
  Report Type: 
  Country: None (occurrence: None)
  Receive Date: 20070320
  Receipt Date: 20070227
  Transmission Date: 20070707
  Serious: Yes (Hospitalization)
  Sender: FDA-Public Use
  Company Number: DE-BOEHRINGER INGELHEIM PHARMACEUTICALS, INC.-2007-DE-01348BY

PATIENT

DRUGS (5)
  1. KINZALMONO [Suspect]
     Route: 048
     Dates: start: 20041202, end: 20050405
  2. RAMIPRIL [Concomitant]
     Route: 048
  3. AMLOBETA [Concomitant]
     Route: 048
     Dates: start: 20041202
  4. TENORMIN [Concomitant]
     Route: 048
     Dates: start: 19980903
  5. MARCUMAR [Concomitant]
     Route: 048
     Dates: start: 20041208

REACTIONS (2)
  - ARRHYTHMIA [None]
  - HOSPITALISATION [None]
